FAERS Safety Report 13720544 (Version 2)
Quarter: 2017Q3

REPORT INFORMATION
  Report Type: Spontaneous
  Country: US (occurrence: US)
  Receive Date: 20170706
  Receipt Date: 20170727
  Transmission Date: 20171127
  Serious: Yes (Other)
  Sender: FDA-Public Use
  Company Number: US-RECKITT BENCKISER HEALTHCARE INT LIMITED-RB-82931-2017

PATIENT
  Age: 60 Year
  Sex: Female

DRUGS (3)
  1. CORICIDIN HBP [Concomitant]
     Active Substance: ACETAMINOPHEN\CHLORPHENIRAMINE MALEATE
     Indication: PRODUCT USED FOR UNKNOWN INDICATION
     Dosage: UNK, AT NIGHT
     Route: 065
  2. MUCINEX MAXIMUM STRENGTH [Suspect]
     Active Substance: GUAIFENESIN
     Indication: PRODUCT USED FOR UNKNOWN INDICATION
     Dosage: 1200 MG, QID
     Route: 065
     Dates: start: 20161228, end: 20170103
  3. MUCINEX MAXIMUM STRENGTH [Suspect]
     Active Substance: GUAIFENESIN
     Dosage: 1200 MG, QD
     Route: 065
     Dates: start: 20170102

REACTIONS (7)
  - Dyspnoea [Unknown]
  - Chest pain [Unknown]
  - Skin discolouration [Unknown]
  - Myalgia [Unknown]
  - Headache [Recovered/Resolved]
  - Accidental overdose [Unknown]
  - Bronchitis [Unknown]

NARRATIVE: CASE EVENT DATE: 201612
